FAERS Safety Report 5249707-7 (Version None)
Quarter: 2007Q1

REPORT INFORMATION
  Report Type: 
  Country: None (occurrence: None)
  Receive Date: 20070223
  Receipt Date: 20070214
  Transmission Date: 20070707
  Serious: Yes (Death, Hospitalization)
  Sender: FDA-Public Use
  Company Number: 056-C5013-07010563

PATIENT
  Age: 50 Year
  Sex: Male

DRUGS (10)
  1. CC-5013(LENALIDOMIDE) (CAPSULES) [Suspect]
     Indication: MULTIPLE MYELOMA
     Dosage: 25 MG, 1 IN 1 D, ORAL
     Route: 048
     Dates: start: 20061219, end: 20061227
  2. DEXAMETHASONE TAB [Suspect]
     Indication: MULTIPLE MYELOMA
     Dosage: 40 MG
     Dates: start: 20061219, end: 20061222
  3. LEVOTHYROXINE SODIUM [Concomitant]
  4. ZOPRAL (ALPRAZOLAM) [Concomitant]
  5. BICARBONATE (SODIUM BICARBONATE) [Concomitant]
  6. CALCIUM CHLORIDE [Concomitant]
  7. PERFALGAN (PARACETAMOL) [Concomitant]
  8. MORPHINE SULFATE [Concomitant]
  9. ROCEPHIN [Concomitant]
  10. OFLOXACIN [Concomitant]

REACTIONS (10)
  - CARDIAC FAILURE [None]
  - CORYNEBACTERIUM INFECTION [None]
  - FEBRILE BONE MARROW APLASIA [None]
  - LUNG DISORDER [None]
  - PANCYTOPENIA [None]
  - PNEUMOCOCCAL INFECTION [None]
  - RENAL FAILURE [None]
  - RESPIRATORY FAILURE [None]
  - SEPTIC SHOCK [None]
  - STREPTOCOCCAL INFECTION [None]
